FAERS Safety Report 21509797 (Version 1)
Quarter: 2022Q4

REPORT INFORMATION
  Report Type: Report from Study
  Country: ES (occurrence: ES)
  Receive Date: 20221026
  Receipt Date: 20221026
  Transmission Date: 20230112
  Serious: Yes (Other)
  Sender: FDA-Public Use
  Company Number: ES-JAZZ-2022-ES-008713

PATIENT
  Age: 60 Year

DRUGS (3)
  1. DEFITELIO [Suspect]
     Active Substance: DEFIBROTIDE SODIUM
     Indication: Venoocclusive disease
     Dosage: UNK
     Dates: start: 20220203
  2. METHYLPREDNISOLONE [Concomitant]
     Active Substance: METHYLPREDNISOLONE
     Indication: Prophylaxis
     Dosage: UNK
  3. SODIUM [Concomitant]
     Active Substance: SODIUM
     Indication: Prophylaxis
     Dosage: UNK

REACTIONS (2)
  - Venoocclusive disease [Unknown]
  - Off label use [Unknown]

NARRATIVE: CASE EVENT DATE: 20220205
